FAERS Safety Report 7080408-9 (Version None)
Quarter: 2010Q4

REPORT INFORMATION
  Report Type: 
  Country: None (occurrence: None)
  Receive Date: 20101103
  Receipt Date: 20100618
  Transmission Date: 20110411
  Serious: Yes (Hospitalization, Other)
  Sender: FDA-Public Use
  Company Number: US-BAYER-201021265NA

PATIENT
  Age: 28 Year
  Sex: Female
  Weight: 96 kg

DRUGS (10)
  1. YAZ [Suspect]
     Indication: CONTRACEPTION
     Route: 048
     Dates: start: 20080319, end: 20080401
  2. YASMIN [Suspect]
     Indication: CONTRACEPTION
     Dates: start: 20080301, end: 20080401
  3. FEXOFENADINE HCL [Concomitant]
     Dates: start: 20060101
  4. CIPROFLOXACIN [Concomitant]
  5. AZITHROMYCIN [Concomitant]
  6. CYTOMEL [Concomitant]
     Dates: start: 20060313, end: 20060803
  7. IBUPROFEN [Concomitant]
     Indication: MUSCLE SPASMS
     Route: 048
  8. AGGRENOX [Concomitant]
  9. LIPITOR [Concomitant]
     Route: 048
  10. ALLEGRA [Concomitant]

REACTIONS (13)
  - BRAIN INJURY [None]
  - CEREBROVASCULAR ACCIDENT [None]
  - CONFUSIONAL STATE [None]
  - DYSGEUSIA [None]
  - DYSPHAGIA [None]
  - GAIT DISTURBANCE [None]
  - HEADACHE [None]
  - HYPOAESTHESIA [None]
  - HYPOAESTHESIA FACIAL [None]
  - MIGRAINE [None]
  - MUSCULAR WEAKNESS [None]
  - THALAMIC INFARCTION [None]
  - VISION BLURRED [None]
